FAERS Safety Report 6261452-8 (Version None)
Quarter: 2009Q3

REPORT INFORMATION
  Report Type: 
  Country: None (occurrence: None)
  Receive Date: 20090709
  Receipt Date: 20090629
  Transmission Date: 20100115
  Serious: Yes (Death)
  Sender: FDA-Public Use
  Company Number: US-MYLANLABS-2009S1009488

PATIENT
  Age: 39 Year
  Sex: Female
  Weight: 103.87 kg

DRUGS (6)
  1. FENTANYL TRANSDERMAL SYSTEM [Suspect]
     Indication: ABDOMINAL PAIN UPPER
     Route: 062
  2. XANAX [Suspect]
  3. PAXIL [Suspect]
  4. CANNABIS [Suspect]
  5. FLEXERIL [Concomitant]
  6. IBUPROFEN [Concomitant]

REACTIONS (4)
  - ACCIDENTAL OVERDOSE [None]
  - DRUG TOXICITY [None]
  - INTENTIONAL DRUG MISUSE [None]
  - THERAPY NAIVE [None]
